FAERS Safety Report 5268995-4 (Version None)
Quarter: 2007Q1

REPORT INFORMATION
  Report Type: 
  Country: None (occurrence: None)
  Receive Date: 20070319
  Receipt Date: 20070312
  Transmission Date: 20070707
  Serious: Yes (Other)
  Sender: FDA-Public Use
  Company Number: US-JNJFOC-20070302553

PATIENT
  Age: 76 Year
  Sex: Female
  Weight: 58 kg

DRUGS (1)
  1. NESERITIDE [Suspect]
     Indication: CARDIAC FAILURE CONGESTIVE
     Route: 042

REACTIONS (6)
  - BLOOD PRESSURE DECREASED [None]
  - HEART RATE INCREASED [None]
  - PRURITUS [None]
  - RASH ERYTHEMATOUS [None]
  - RASH MACULAR [None]
  - SKIN DISCOLOURATION [None]
